FAERS Safety Report 7400439-6 (Version None)
Quarter: 2011Q2

REPORT INFORMATION
  Report Type: 
  Country: None (occurrence: None)
  Receive Date: 20110405
  Receipt Date: 20110405
  Transmission Date: 20111010
  Serious: Yes (Other)
  Sender: FDA-Public Use
  Company Number: None

PATIENT
  Age: 71 Year
  Sex: Female
  Weight: 65.7716 kg

DRUGS (3)
  1. ZYRTEC [Suspect]
     Indication: SKIN DISORDER
     Dosage: 10MG ONCE DAILY PO
     Route: 048
     Dates: start: 20080110, end: 20110331
  2. ZYRTEC [Suspect]
     Indication: PRURITUS
     Dosage: 10MG ONCE DAILY PO
     Route: 048
     Dates: start: 20080110, end: 20110331
  3. ZYRTEC [Suspect]
     Indication: ERYTHEMA
     Dosage: 10MG ONCE DAILY PO
     Route: 048
     Dates: start: 20080110, end: 20110331

REACTIONS (2)
  - URTICARIA [None]
  - PRURITUS GENERALISED [None]
